FAERS Safety Report 13769333 (Version 6)
Quarter: 2017Q4

REPORT INFORMATION
  Report Type: Report from Study
  Country: US (occurrence: US)
  Receive Date: 20170719
  Receipt Date: 20171116
  Transmission Date: 20180320
  Serious: Yes (Other)
  Sender: FDA-Public Use
  Company Number: US-JNJFOC-20170503257

PATIENT
  Sex: Female

DRUGS (20)
  1. IMBRUVICA [Suspect]
     Active Substance: IBRUTINIB
     Indication: CHRONIC LYMPHOCYTIC LEUKAEMIA
     Route: 048
     Dates: start: 20161203
  2. IMBRUVICA [Suspect]
     Active Substance: IBRUTINIB
     Indication: CHRONIC LYMPHOCYTIC LEUKAEMIA
     Route: 048
     Dates: start: 20161221
  3. ASPIRIN. [Concomitant]
     Active Substance: ASPIRIN
  4. ASCORBIC ACID. [Concomitant]
     Active Substance: ASCORBIC ACID
  5. MAGNESIUM OXIDE. [Concomitant]
     Active Substance: MAGNESIUM OXIDE
  6. TOPROL XL [Concomitant]
     Active Substance: METOPROLOL SUCCINATE
  7. CYANOCOBALAMIN. [Concomitant]
     Active Substance: CYANOCOBALAMIN
  8. METHENAMINE [Concomitant]
     Active Substance: METHENAMINE
  9. AUGMENTIN [Suspect]
     Active Substance: AMOXICILLIN\CLAVULANATE POTASSIUM
     Indication: URINARY TRACT INFECTION
     Route: 065
  10. LOSARTAN POTASSIUM. [Concomitant]
     Active Substance: LOSARTAN POTASSIUM
  11. ATIVAN [Suspect]
     Active Substance: LORAZEPAM
     Indication: INSOMNIA
     Route: 065
  12. MELATONIN [Suspect]
     Active Substance: MELATONIN
     Indication: INSOMNIA
     Route: 065
  13. CHOLECALCIFEROL [Concomitant]
     Active Substance: CHOLECALCIFEROL
  14. KLONOPIN [Concomitant]
     Active Substance: CLONAZEPAM
  15. MAGNESIUM [Concomitant]
     Active Substance: MAGNESIUM
  16. MACROBID [Concomitant]
     Active Substance: NITROFURANTOIN\NITROFURANTOIN MONOHYDRATE
  17. CLONAZEPAM. [Concomitant]
     Active Substance: CLONAZEPAM
  18. BENADRYL [Suspect]
     Active Substance: DIPHENHYDRAMINE HYDROCHLORIDE
     Indication: PRODUCT USED FOR UNKNOWN INDICATION
  19. PRILOSEC [Concomitant]
     Active Substance: OMEPRAZOLE MAGNESIUM
  20. ELIQUIS [Concomitant]
     Active Substance: APIXABAN

REACTIONS (13)
  - Supraventricular tachycardia [Unknown]
  - Insomnia [Unknown]
  - Adverse drug reaction [Unknown]
  - Atrial fibrillation [Unknown]
  - Supraventricular extrasystoles [Unknown]
  - Migraine [Unknown]
  - Urinary tract infection [Not Recovered/Not Resolved]
  - Aphasia [Unknown]
  - Somnolence [Unknown]
  - Diarrhoea [Unknown]
  - Arthralgia [Unknown]
  - Ventricular extrasystoles [Unknown]
  - Asthenia [Unknown]
